FAERS Safety Report 4907194-X (Version None)
Quarter: 2006Q1

REPORT INFORMATION
  Report Type: 
  Country: None (occurrence: None)
  Receive Date: 20060207
  Receipt Date: 20060124
  Transmission Date: 20060701
  Serious: Yes (Hospitalization)
  Sender: FDA-Public Use
  Company Number: US016666

PATIENT
  Age: 44 Year
  Sex: Female
  Weight: 114.0797 kg

DRUGS (5)
  1. GABITRIL [Suspect]
     Indication: HEADACHE
     Dosage: 2 MG BID ORAL
     Route: 048
     Dates: start: 20041208, end: 20041217
  2. GABITRIL [Suspect]
     Indication: HEADACHE
     Dosage: 4 MG BID ORAL
     Route: 048
     Dates: start: 20041218, end: 20041227
  3. GABITRIL [Suspect]
     Indication: HEADACHE
     Dosage: 6 MG BID ORAL
     Route: 048
     Dates: start: 20041228, end: 20050222
  4. GABITRIL [Suspect]
     Indication: HEADACHE
     Dosage: 12 MG QAM/PM ORAL
     Dates: start: 20050223, end: 20050523
  5. GABITRIL [Suspect]
     Indication: HEADACHE
     Dosage: 48 MG QD ORAL
     Route: 048
     Dates: start: 20050524, end: 20050928

REACTIONS (11)
  - APHASIA [None]
  - BLINDNESS TRANSIENT [None]
  - COGNITIVE DISORDER [None]
  - COMPLEX PARTIAL SEIZURES [None]
  - CONFUSIONAL STATE [None]
  - DISORIENTATION [None]
  - DYSARTHRIA [None]
  - HEADACHE [None]
  - MENTAL IMPAIRMENT [None]
  - READING DISORDER [None]
  - TONGUE PARALYSIS [None]
